FAERS Safety Report 4741462-X (Version None)
Quarter: 2005Q3

REPORT INFORMATION
  Report Type: 
  Country: None (occurrence: None)
  Receive Date: 20050808
  Receipt Date: 20050726
  Transmission Date: 20060218
  Serious: Yes (Other)
  Sender: FDA-Public Use
  Company Number: DE_050515846

PATIENT
  Age: 55 Year
  Sex: Male

DRUGS (3)
  1. CEFACLOR [Suspect]
     Indication: EAR INFECTION
     Dosage: 500 MG/3 DAY
     Dates: start: 20050425, end: 20050428
  2. SINUPRET [Concomitant]
     Indication: RHINITIS
  3. ACETYLCYSTEINE [Concomitant]
     Indication: PHARYNGITIS

REACTIONS (1)
  - VISUAL FIELD DEFECT [None]
